FAERS Safety Report 13767871 (Version 1)
Quarter: 2017Q3

REPORT INFORMATION
  Report Type: Spontaneous
  Country: US (occurrence: US)
  Receive Date: 20170719
  Receipt Date: 20170719
  Transmission Date: 20171127
  Serious: No
  Sender: FDA-Public Use
  Company Number: US-PFIZER INC-2017308248

PATIENT
  Age: 9 Year
  Sex: Male

DRUGS (5)
  1. GENOTROPIN [Suspect]
     Active Substance: SOMATROPIN
     Indication: CONGENITAL ANOMALY
  2. GENOTROPIN [Suspect]
     Active Substance: SOMATROPIN
     Indication: PRADER-WILLI SYNDROME
     Dosage: 1 MG, DAILY
     Route: 058
     Dates: start: 201501
  3. GENOTROPIN [Suspect]
     Active Substance: SOMATROPIN
     Indication: BODY HEIGHT BELOW NORMAL
  4. GENOTROPIN [Suspect]
     Active Substance: SOMATROPIN
     Indication: MUSCULOSKELETAL DISORDER
  5. GENOTROPIN [Suspect]
     Active Substance: SOMATROPIN
     Indication: ESSENTIAL HYPERTENSION

REACTIONS (1)
  - Constipation [Unknown]
